FAERS Safety Report 5055095-1 (Version None)
Quarter: 2006Q3

REPORT INFORMATION
  Report Type: 
  Country: None (occurrence: None)
  Receive Date: 20060719
  Receipt Date: 20050303
  Transmission Date: 20061208
  Serious: No
  Sender: FDA-Public Use
  Company Number: US-AMGEN-KDL119027

PATIENT
  Age: 83 Year
  Sex: Female
  Weight: 52.7 kg

DRUGS (1)
  1. PROCRIT [Suspect]
     Indication: RENAL FAILURE CHRONIC
     Dates: start: 20040101

REACTIONS (2)
  - PRURITUS [None]
  - RASH GENERALISED [None]
